FAERS Safety Report 8358084-4 (Version None)
Quarter: 2012Q2

REPORT INFORMATION
  Report Type: 
  Country: None (occurrence: None)
  Receive Date: 20120514
  Receipt Date: 20120507
  Transmission Date: 20120825
  Serious: Yes (Other)
  Sender: FDA-Public Use
  Company Number: US-BAYER-2012-045879

PATIENT
  Age: 73 Year
  Sex: Male
  Weight: 79.365 kg

DRUGS (2)
  1. NEO-SYNEPHRINE REGULAR STRENGTH [Suspect]
     Indication: SINUS CONGESTION
     Dosage: 2 PUFF(S), QD
     Route: 045
     Dates: start: 20120430, end: 20120506
  2. FLOMAX [Concomitant]

REACTIONS (5)
  - ABNORMAL DREAMS [None]
  - DISTURBANCE IN ATTENTION [None]
  - NIGHTMARE [None]
  - DISORIENTATION [None]
  - CONFUSIONAL STATE [None]
